FAERS Safety Report 10088947 (Version 1)
Quarter: 2014Q2

REPORT INFORMATION
  Report Type: Spontaneous
  Country: US (occurrence: None)
  Receive Date: 20140418
  Receipt Date: 20140418
  Transmission Date: 20141212
  Serious: No
  Sender: FDA-Public Use
  Company Number: None

PATIENT
  Age: 61 Year
  Sex: Female
  Weight: 86.18 kg

DRUGS (14)
  1. GABAPENTIN 300 MG [Suspect]
     Indication: NEURALGIA
     Route: 048
  2. VENLAFAXINE ER [Concomitant]
  3. TRIAMTERENE [Concomitant]
  4. LEVOTHYROXINE [Concomitant]
  5. LANTUS SOLOSTAR [Concomitant]
  6. DIOVAN [Concomitant]
  7. FENTANYL/HR PATCH [Concomitant]
  8. HUMALOG [Concomitant]
  9. DYAZIDE [Concomitant]
  10. IBUPROFEN [Concomitant]
  11. PREMARIN [Concomitant]
  12. SYNTHROID [Concomitant]
  13. POLYETH GLYCOL [Concomitant]
  14. ADVIL [Concomitant]

REACTIONS (6)
  - Headache [None]
  - Pyrexia [None]
  - Balance disorder [None]
  - Confusional state [None]
  - Meningitis [None]
  - Mental status changes [None]
